FAERS Safety Report 25228431 (Version 3)
Quarter: 2025Q2

REPORT INFORMATION
  Report Type: Spontaneous
  Country: CN (occurrence: CN)
  Receive Date: 20250423
  Receipt Date: 20250504
  Transmission Date: 20250717
  Serious: Yes (Death)
  Sender: SANOFI AVENTIS
  Company Number: CN-SANOFI-02492073

PATIENT
  Sex: Male

DRUGS (1)
  1. THYMOGLOBULIN [Suspect]
     Active Substance: LAPINE T-LYMPHOCYTE IMMUNE GLOBULIN
     Dosage: 19 DF, Q4D
     Dates: start: 20250212

REACTIONS (3)
  - Infection [Fatal]
  - Pyrexia [Fatal]
  - Inappropriate schedule of product administration [Unknown]

NARRATIVE: CASE EVENT DATE: 20250201
